FAERS Safety Report 6365975-2 (Version None)
Quarter: 2009Q3

REPORT INFORMATION
  Report Type: 
  Country: None (occurrence: None)
  Receive Date: 20090919
  Receipt Date: 20090827
  Transmission Date: 20100115
  Serious: No
  Sender: FDA-Public Use
  Company Number: US-ABBOTT-09P-163-0594025-00

PATIENT
  Sex: Female
  Weight: 99.88 kg

DRUGS (5)
  1. HUMIRA [Suspect]
     Indication: PSORIASIS
     Dates: start: 20090101
  2. HUMIRA [Suspect]
     Indication: PSORIATIC ARTHROPATHY
  3. TACLONEX [Concomitant]
     Indication: PSORIASIS
     Route: 061
  4. ZETIA [Concomitant]
     Indication: BLOOD CHOLESTEROL INCREASED
  5. LISINOPRIL [Concomitant]
     Indication: HYPERTENSION

REACTIONS (1)
  - DRUG DOSE OMISSION [None]
